FAERS Safety Report 8248385-2 (Version None)
Quarter: 2012Q1

REPORT INFORMATION
  Report Type: 
  Country: None (occurrence: None)
  Receive Date: 20120330
  Receipt Date: 20120319
  Transmission Date: 20120608
  Serious: Yes (Hospitalization)
  Sender: FDA-Public Use
  Company Number: CHPA2012CA004295

PATIENT
  Age: 72 Year
  Sex: Female

DRUGS (4)
  1. TYLENOL [Concomitant]
     Indication: ARTHRITIS
     Dosage: UNK, UNK
  2. EXCEDRIN EXTRA STRENGTH CAPLETS [Suspect]
     Indication: HEADACHE
     Dosage: 1 DF, PER DAY
     Route: 048
  3. TEGRETOL [Suspect]
     Dosage: UNK, UNK
     Dates: start: 20060101, end: 20060101
  4. VIMOVO [Concomitant]
     Indication: ARTHRALGIA
     Dosage: UNK, UNK
     Dates: start: 20120201

REACTIONS (3)
  - BRONCHITIS [None]
  - INCORRECT DRUG ADMINISTRATION DURATION [None]
  - PLATELET COUNT DECREASED [None]
